FAERS Safety Report 20376186 (Version 1)
Quarter: 2022Q1

REPORT INFORMATION
  Report Type: Spontaneous
  Country: US (occurrence: None)
  Receive Date: 20220125
  Receipt Date: 20220125
  Transmission Date: 20220423
  Serious: Yes (Life-Threatening)
  Sender: FDA-Public Use
  Company Number: None

PATIENT
  Age: 6 Year
  Sex: Female

DRUGS (1)
  1. KETAMINE [Suspect]
     Active Substance: KETAMINE
     Indication: Sedative therapy
     Dosage: 30MG ONCE?
     Route: 042
     Dates: start: 20210101, end: 20210101

REACTIONS (1)
  - Hypersensitivity [None]

NARRATIVE: CASE EVENT DATE: 20210101
